FAERS Safety Report 7570875-6 (Version None)
Quarter: 2011Q2

REPORT INFORMATION
  Report Type: 
  Country: None (occurrence: None)
  Receive Date: 20110622
  Receipt Date: 20110622
  Transmission Date: 20111010
  Serious: Yes (Hospitalization)
  Sender: FDA-Public Use
  Company Number: None

PATIENT
  Sex: Female
  Weight: 40.8237 kg

DRUGS (2)
  1. MEGESTROL ACETATE [Suspect]
     Indication: LUNG DISORDER
     Dosage: 1 CAP 20 VOLUME EVERY 12 HRS.
     Dates: start: 20110401, end: 20110501
  2. BACTRIM [Suspect]
     Indication: WEIGHT DECREASED
     Dosage: 1 TAB EVERY 12 HRS.
     Dates: start: 20110501, end: 20110601

REACTIONS (6)
  - FEELING ABNORMAL [None]
  - RASH GENERALISED [None]
  - PYREXIA [None]
  - ULCER [None]
  - ASTHENIA [None]
  - URTICARIA [None]
